FAERS Safety Report 15401241 (Version 4)
Quarter: 2021Q1

REPORT INFORMATION
  Report Type: Report from Study
  Country: US (occurrence: US)
  Receive Date: 20180919
  Receipt Date: 20210101
  Transmission Date: 20210419
  Serious: Yes (Other)
  Sender: FDA-Public Use
  Company Number: PHEH2018US037582

PATIENT
  Age: 44 Year
  Sex: Male

DRUGS (2)
  1. AFINITOR [Suspect]
     Active Substance: EVEROLIMUS
     Indication: TUBEROUS SCLEROSIS COMPLEX
     Dosage: 12.5 MG, QD
     Route: 048
     Dates: start: 20131223
  2. AFINITOR [Suspect]
     Active Substance: EVEROLIMUS
     Indication: ANGIOMYOLIPOMA

REACTIONS (6)
  - Blood cholesterol increased [Unknown]
  - Hypokinesia [Unknown]
  - Blood triglycerides increased [Unknown]
  - Intracranial pressure increased [Unknown]
  - Kidney enlargement [Unknown]
  - Hidradenitis [Unknown]

NARRATIVE: CASE EVENT DATE: 20180808
